FAERS Safety Report 14786711 (Version 1)
Quarter: 2018Q2

REPORT INFORMATION
  Report Type: Report from Study
  Country: US (occurrence: US)
  Receive Date: 20180420
  Receipt Date: 20180420
  Transmission Date: 20180711
  Serious: Yes (Hospitalization)
  Sender: FDA-Public Use
  Company Number: US-ACTELION-A-US2018-170797

PATIENT
  Age: 14 Month
  Sex: Female

DRUGS (2)
  1. BOSENTAN TABLET 32 MG PED US [Suspect]
     Active Substance: BOSENTAN
     Indication: PULMONARY HYPERTENSION
     Dosage: 24 MG, BID BY MOUTH OR BY J-TUBE
     Route: 048
  2. REMODULIN [Concomitant]
     Active Substance: TREPROSTINIL
     Route: 065

REACTIONS (2)
  - Weight decreased [Unknown]
  - Diarrhoea [Unknown]
